FAERS Safety Report 21684715 (Version 1)
Quarter: 2022Q4

REPORT INFORMATION
  Report Type: Spontaneous
  Country: US (occurrence: US)
  Receive Date: 20221205
  Receipt Date: 20221205
  Transmission Date: 20230113
  Serious: Yes (Other)
  Sender: FDA-Public Use
  Company Number: US-BRISTOL-MYERS SQUIBB COMPANY-2022-144789

PATIENT
  Age: 99 Year
  Sex: Male

DRUGS (2)
  1. ELIQUIS [Suspect]
     Active Substance: APIXABAN
     Indication: Myocardial infarction
     Route: 048
  2. ELIQUIS [Suspect]
     Active Substance: APIXABAN
     Dosage: SHE STARTED GIVING HIM APIXABAN 5MG IN THE MORNING AND 2.5MG IN THE EVENING FOR LAST TWO DAYS AND TO
     Route: 048
     Dates: start: 20221126

REACTIONS (3)
  - Transient ischaemic attack [Unknown]
  - Bell^s palsy [Unknown]
  - Intentional product use issue [Unknown]

NARRATIVE: CASE EVENT DATE: 20221101
